FAERS Safety Report 19862479 (Version 1)
Quarter: 2021Q3

REPORT INFORMATION
  Report Type: Spontaneous
  Country: CA (occurrence: CA)
  Receive Date: 20210921
  Receipt Date: 20210921
  Transmission Date: 20211014
  Serious: Yes (Hospitalization, Other)
  Sender: FDA-Public Use
  Company Number: CA-PURDUE-USA-2021-0284723

PATIENT
  Age: 56 Year
  Sex: Female

DRUGS (29)
  1. THEOPHYLLINE (040086, 087571 RHODES) [Suspect]
     Active Substance: THEOPHYLLINE ANHYDROUS
     Indication: PRODUCT USED FOR UNKNOWN INDICATION
     Dosage: 600.0 MG, DAILY (1 EVERY 1 DAYS)
     Route: 065
  2. FLUTICASONE W/SALMETEROL [Suspect]
     Active Substance: FLUTICASONE PROPIONATE\SALMETEROL XINAFOATE
     Indication: ASTHMA
     Dosage: 1.0 DF, TID (1 EVERY 8 HOURS)
     Route: 065
  3. PAROXETINE HYDROCHLORIDE. [Concomitant]
     Active Substance: PAROXETINE HYDROCHLORIDE
     Route: 065
  4. ESTROGENS CONJUGATED W/MEDROGESTONE [Concomitant]
     Active Substance: ESTROGENS, CONJUGATED\MEDROGESTONE
     Indication: PRODUCT USED FOR UNKNOWN INDICATION
     Dosage: 0.925 MG, DAILY (1 EVERY 1 DAYS)
     Route: 065
  5. ESOMEPRAZOLE MAGNESIUM TRIHYDRATE [Concomitant]
     Active Substance: ESOMEPRAZOLE MAGNESIUM
     Route: 065
  6. VITAMIN D                          /00107901/ [Concomitant]
     Active Substance: ERGOCALCIFEROL
     Route: 065
  7. SYMBICORT [Suspect]
     Active Substance: BUDESONIDE\FORMOTEROL FUMARATE DIHYDRATE
     Indication: PRODUCT USED FOR UNKNOWN INDICATION
     Dosage: 2.0 DF, BID  (1 EVERY 12 HOURS)
     Route: 055
  8. CETIRIZINE [Concomitant]
     Active Substance: CETIRIZINE HYDROCHLORIDE
     Route: 065
  9. VALSARTAN. [Concomitant]
     Active Substance: VALSARTAN
     Dosage: 1.0 DF, DAILY (1 EVERY 1 DAYS)
     Route: 065
  10. ALVESCO [Suspect]
     Active Substance: CICLESONIDE
     Indication: PRODUCT USED FOR UNKNOWN INDICATION
     Dosage: 2.0 DF, QID (1 EVERY 6 HOURS)
     Route: 055
  11. FLOVENT [Suspect]
     Active Substance: FLUTICASONE PROPIONATE
     Indication: ASTHMA
     Dosage: UNK
     Route: 065
  12. FLUTICASONE PROPIONATE. [Suspect]
     Active Substance: FLUTICASONE PROPIONATE
     Indication: ASTHMA
     Dosage: 2.0 DF, BID (2 EVERY 1 DAYS)
     Route: 065
  13. MONTELUKAST SODIUM. [Suspect]
     Active Substance: MONTELUKAST SODIUM
     Indication: PRODUCT USED FOR UNKNOWN INDICATION
     Dosage: 10.0 MG, UNK
     Route: 048
  14. CETIRIZINE HYDROCHLORIDE. [Concomitant]
     Active Substance: CETIRIZINE HYDROCHLORIDE
     Indication: PRODUCT USED FOR UNKNOWN INDICATION
     Route: 065
  15. ERGOCALCIFEROL. [Concomitant]
     Active Substance: ERGOCALCIFEROL
     Dosage: 2000.0 DF, DAILY
     Route: 065
  16. AVAMYS [Suspect]
     Active Substance: FLUTICASONE FUROATE
     Indication: ASTHMA
     Dosage: UNK
     Route: 065
  17. SALBUTAMOL [Suspect]
     Active Substance: ALBUTEROL
     Indication: ASTHMA
     Dosage: UNK
     Route: 065
  18. SYMBICORT [Suspect]
     Active Substance: BUDESONIDE\FORMOTEROL FUMARATE DIHYDRATE
     Dosage: UNK
     Route: 065
  19. VALSARTAN AND HYDROCHLOROTHIAZIDE [Concomitant]
     Active Substance: HYDROCHLOROTHIAZIDE\VALSARTAN
     Route: 065
  20. SINGULAIR [Suspect]
     Active Substance: MONTELUKAST SODIUM
     Indication: PRODUCT USED FOR UNKNOWN INDICATION
     Dosage: UNK
     Route: 065
  21. BUPROPION HYDROBROMIDE [Concomitant]
     Active Substance: BUPROPION HYDROBROMIDE
     Route: 065
  22. PREDNISONE. [Suspect]
     Active Substance: PREDNISONE
     Indication: PRODUCT USED FOR UNKNOWN INDICATION
     Dosage: 100.0 MG, DAILY (1 EVERY 1 DAYS)
     Route: 048
  23. DULOXETINE HYDROCHLORIDE. [Concomitant]
     Active Substance: DULOXETINE HYDROCHLORIDE
     Route: 048
  24. UNIPHYL [Suspect]
     Active Substance: THEOPHYLLINE ANHYDROUS
     Indication: PRODUCT USED FOR UNKNOWN INDICATION
     Dosage: 1.0 DF, DAILY (1 EVERY 1 DAYS)
     Route: 065
  25. ADVAIR HFA [Suspect]
     Active Substance: FLUTICASONE PROPIONATE\SALMETEROL XINAFOATE
     Indication: ASTHMA
     Dosage: UNK
     Route: 065
  26. ATROVENT [Suspect]
     Active Substance: IPRATROPIUM BROMIDE
     Indication: PRODUCT USED FOR UNKNOWN INDICATION
     Dosage: UNK
     Route: 065
  27. GLYCOPYRRONIUM BROMIDE [Suspect]
     Active Substance: GLYCOPYRROLATE
     Indication: PRODUCT USED FOR UNKNOWN INDICATION
     Dosage: 50.0 MG, DAILY (1 EVERY 1 DAYS)
     Route: 055
  28. AMLODIPINE BESILATE W/HYDROCHLOROTHIAZIDE/VAL [Concomitant]
     Indication: PRODUCT USED FOR UNKNOWN INDICATION
     Route: 065
  29. PANTOPRAZOLE SODIUM ANHYDROUS [Concomitant]
     Active Substance: PANTOPRAZOLE SODIUM ANHYDROUS
     Dosage: UNK
     Route: 065

REACTIONS (28)
  - Dyspnoea [Unknown]
  - Granuloma [Unknown]
  - Herpes zoster [Unknown]
  - Nasal congestion [Unknown]
  - Respiratory disorder [Unknown]
  - Rhinitis [Unknown]
  - Bronchial neoplasm [Unknown]
  - Rhonchi [Unknown]
  - Hypersensitivity [Unknown]
  - Bronchial disorder [Unknown]
  - Condition aggravated [Unknown]
  - Endometrial ablation [Unknown]
  - Infection [Unknown]
  - Lower respiratory tract infection [Unknown]
  - Obstructive airways disorder [Unknown]
  - Sinusitis [Unknown]
  - Wheezing [Unknown]
  - Sinus tachycardia [Unknown]
  - Asthma [Unknown]
  - Breath sounds abnormal [Unknown]
  - Maternal exposure during pregnancy [Unknown]
  - Ankle fracture [Unknown]
  - Affective disorder [Unknown]
  - Bronchial haemorrhage [Unknown]
  - Therapeutic product effect incomplete [Unknown]
  - Nasal turbinate hypertrophy [Unknown]
  - Oxygen saturation decreased [Unknown]
  - Weight increased [Unknown]
